FAERS Safety Report 11359731 (Version 1)
Quarter: 2015Q3

REPORT INFORMATION
  Report Type: Spontaneous
  Country: LB (occurrence: LB)
  Receive Date: 20150808
  Receipt Date: 20150808
  Transmission Date: 20151125
  Serious: Yes (Death)
  Sender: FDA-Public Use
  Company Number: LB-JNJFOC-20150721837

PATIENT

DRUGS (5)
  1. PETHIDINE [Suspect]
     Active Substance: MEPERIDINE
     Indication: PREMEDICATION
     Route: 065
  2. PARACETAMOL [Suspect]
     Active Substance: ACETAMINOPHEN
     Route: 065
  3. PARACETAMOL [Suspect]
     Active Substance: ACETAMINOPHEN
     Indication: PREMEDICATION
     Route: 065
  4. STEROIDS NOS [Suspect]
     Active Substance: UNSPECIFIED INGREDIENT
     Indication: PREMEDICATION
     Route: 065
  5. ANTIHISTAMINE NOS [Suspect]
     Active Substance: ANTIHISTAMINES NOS
     Indication: PREMEDICATION
     Route: 065

REACTIONS (2)
  - Death [Fatal]
  - Product use issue [Unknown]
